FAERS Safety Report 18450567 (Version 1)
Quarter: 2020Q4

REPORT INFORMATION
  Report Type: Spontaneous
  Country: BR (occurrence: BR)
  Receive Date: 20201030
  Receipt Date: 20201030
  Transmission Date: 20210114
  Serious: Yes (Hospitalization)
  Sender: FDA-Public Use
  Company Number: BR-ELI_LILLY_AND_COMPANY-BR202009009540

PATIENT
  Sex: Female

DRUGS (3)
  1. VERZENIOS [Suspect]
     Active Substance: ABEMACICLIB
     Indication: BREAST CANCER
     Dosage: 150 MG, EACH MORNING
     Route: 048
     Dates: start: 20200901
  2. VERZENIOS [Suspect]
     Active Substance: ABEMACICLIB
     Indication: BONE CANCER
     Dosage: 150 MG, EACH EVENING
     Route: 048
     Dates: start: 20200901
  3. LETROZOL [Concomitant]
     Active Substance: LETROZOLE
     Indication: PRODUCT USED FOR UNKNOWN INDICATION
     Dosage: 2.5 MG, EACH MORNING
     Route: 065

REACTIONS (5)
  - Hypophagia [Recovered/Resolved]
  - Diarrhoea [Recovered/Resolved]
  - Nausea [Recovered/Resolved]
  - Vomiting [Recovered/Resolved]
  - Decreased appetite [Recovered/Resolved]
